FAERS Safety Report 9308378 (Version 1)
Quarter: 2013Q2

REPORT INFORMATION
  Report Type: Spontaneous
  Country: US (occurrence: US)
  Receive Date: 20130524
  Receipt Date: 20130524
  Transmission Date: 20140414
  Serious: No
  Sender: FDA-Public Use
  Company Number: US-PFIZER INC-2013157689

PATIENT
  Age: 65 Year
  Sex: Male
  Weight: 102.4 kg

DRUGS (9)
  1. NEURONTIN [Suspect]
     Indication: NEUROPATHY PERIPHERAL
     Dosage: 300 MG, UNK
     Route: 048
     Dates: start: 20130327, end: 2013
  2. NEURONTIN [Suspect]
     Indication: NEUROPATHY PERIPHERAL
     Dosage: 300 MG, 3X/DAY
     Route: 048
     Dates: start: 2013
  3. ZOCOR [Concomitant]
     Dosage: 20 MG, UNK
  4. SINGULAIR [Concomitant]
     Dosage: 10 MG, 1X/DAY
  5. LORATADINE [Concomitant]
     Indication: HYPERSENSITIVITY
     Dosage: UNK
  6. MIRAPEX [Concomitant]
     Dosage: 0.25 MG, UNK
  7. HYTRIN [Concomitant]
     Indication: PROSTATOMEGALY
     Dosage: UNK
  8. PRILOSEC [Concomitant]
     Indication: GASTROOESOPHAGEAL REFLUX DISEASE
     Dosage: 20 MG, UNK
  9. CARAFATE [Concomitant]
     Dosage: 1 MG, UNK

REACTIONS (3)
  - Off label use [Unknown]
  - Drug ineffective for unapproved indication [Unknown]
  - Laboratory test abnormal [Unknown]
